FAERS Safety Report 8468868-X (Version None)
Quarter: 2012Q2

REPORT INFORMATION
  Report Type: 
  Country: None (occurrence: None)
  Receive Date: 20120620
  Receipt Date: 20120612
  Transmission Date: 20120825
  Serious: Yes (Hospitalization)
  Sender: FDA-Public Use
  Company Number: 2012HGS-003733

PATIENT
  Age: 45 Year
  Sex: Female
  Weight: 195 kg

DRUGS (8)
  1. BENLYSTA [Suspect]
     Indication: SYSTEMIC LUPUS ERYTHEMATOSUS
     Dosage: 1 IN 28 D, INTRAVENOUS DRIP
     Route: 041
  2. BENADRYL (DIPHENHYDRAMINE HYDROCHLORIDE)(DIPHENHYDRAMINE HYDROCHLORIDE [Concomitant]
  3. RESTASIS (CICLOSPORIN)(CICLOSPORIN) [Concomitant]
  4. DOXEPIN HCL [Concomitant]
  5. ZYRTEC [Concomitant]
  6. MULTIVITAMINS (MULTIVITAMINS)(ERGOCALCIFEROL, ASCORBIC ACID, FOLIC ACI [Concomitant]
  7. ZANTAC [Concomitant]
  8. VIVELLE PATCH (ESTRADIOL)(ESTRADIOL) [Concomitant]

REACTIONS (9)
  - SWELLING FACE [None]
  - HYPERSENSITIVITY [None]
  - PYREXIA [None]
  - CHILLS [None]
  - DIZZINESS [None]
  - DEHYDRATION [None]
  - NAUSEA [None]
  - RASH [None]
  - URTICARIA [None]
